FAERS Safety Report 23793380 (Version 1)
Quarter: 2024Q2

REPORT INFORMATION
  Report Type: Spontaneous
  Country: TR (occurrence: TR)
  Receive Date: 20240429
  Receipt Date: 20240429
  Transmission Date: 20240716
  Serious: Yes (Hospitalization)
  Sender: FDA-Public Use
  Company Number: TR-STRIDES ARCOLAB LIMITED-2024SP004927

PATIENT
  Age: 12 Year
  Sex: Female

DRUGS (1)
  1. ALBENDAZOLE [Suspect]
     Active Substance: ALBENDAZOLE
     Indication: Echinococciasis
     Dosage: 15 MILLIGRAM/KILOGRAM (400 MILLIGRAM PER DAY)
     Route: 065

REACTIONS (1)
  - Rash erythematous [Unknown]
